FAERS Safety Report 10085638 (Version 4)
Quarter: 2014Q2

REPORT INFORMATION
  Report Type: Spontaneous
  Country: US (occurrence: US)
  Receive Date: 20140418
  Receipt Date: 20140609
  Transmission Date: 20141212
  Serious: Yes (Hospitalization, Other)
  Sender: FDA-Public Use
  Company Number: US-JNJFOC-20140405652

PATIENT
  Sex: Male
  Weight: 90.72 kg

DRUGS (10)
  1. DURAGESIC [Suspect]
     Indication: CANCER PAIN
     Dosage: 1 IN 72 HOURS
     Route: 062
     Dates: start: 20130409, end: 201305
  2. ALPRAZOLAM [Concomitant]
     Route: 048
  3. FLUCONAZOLE [Concomitant]
     Indication: PRODUCT USED FOR UNKNOWN INDICATION
     Dosage: TAKE 2 TABLETS BY MOUTH ON DAY ONE AND THEN 1TABLET EVERY DAY.
     Route: 048
  4. ACETAMINOPHEN WITH CODEINE [Concomitant]
     Indication: THROAT CANCER
     Route: 048
     Dates: start: 20130301, end: 20130409
  5. ACETAMINOPHEN WITH CODEINE [Concomitant]
     Indication: PAIN
     Route: 048
     Dates: start: 20130301, end: 20130409
  6. LIDOCAINE CREAM [Concomitant]
     Indication: PAIN
     Route: 065
  7. CITALOPRAM [Concomitant]
     Indication: PRODUCT USED FOR UNKNOWN INDICATION
     Dosage: 1 TABLET BY MOUTH 1TIME ADAY IN THE MORNING BEFORE NOON
     Route: 048
     Dates: start: 20131101
  8. GABAPENTIN [Concomitant]
     Indication: PRODUCT USED FOR UNKNOWN INDICATION
     Dosage: ONE CAPSULE BY MOUTH AT BED TIME
     Route: 048
  9. HYDROXYZINE PAMOATE [Concomitant]
     Indication: PRODUCT USED FOR UNKNOWN INDICATION
     Dosage: TAKE ONE CAPSULE BY MOUTH EVERY NIGHT AT BED TIME AS NEEDED
     Route: 048
  10. FLUOXETINE [Concomitant]
     Indication: PRODUCT USED FOR UNKNOWN INDICATION
     Route: 048

REACTIONS (11)
  - Mental status changes [Recovering/Resolving]
  - Drug dependence [Recovering/Resolving]
  - Adverse drug reaction [Unknown]
  - Flashback [Recovering/Resolving]
  - Insomnia [Recovering/Resolving]
  - Feeling abnormal [Recovering/Resolving]
  - Drug dependence [Recovering/Resolving]
  - Alcoholism [Recovering/Resolving]
  - Binge drinking [Recovered/Resolved]
  - Thinking abnormal [Recovering/Resolving]
  - Adverse drug reaction [Unknown]
